FAERS Safety Report 9233201 (Version 1)
Quarter: 2013Q2

REPORT INFORMATION
  Report Type: Spontaneous
  Country: ES (occurrence: ES)
  Receive Date: 20130416
  Receipt Date: 20130416
  Transmission Date: 20140414
  Serious: Yes (Hospitalization)
  Sender: FDA-Public Use
  Company Number: ES-SANOFI-AVENTIS-2013SA037393

PATIENT
  Age: 80 Year
  Sex: Female

DRUGS (6)
  1. SEGURIL [Suspect]
     Indication: CARDIAC FAILURE
     Route: 048
     Dates: start: 201206
  2. RISPERIDONE [Interacting]
     Indication: DEPRESSION
     Route: 048
     Dates: start: 20121119, end: 20130110
  3. EXELON [Interacting]
     Indication: DEMENTIA
     Route: 062
     Dates: start: 201209, end: 20130110
  4. ENALAPRIL [Interacting]
     Indication: HYPERTENSION
     Route: 048
  5. QUETIAPINE [Interacting]
     Indication: DEPRESSION
     Route: 048
     Dates: start: 20121002
  6. PRAVASTATIN [Concomitant]
     Indication: CARDIAC FAILURE
     Route: 048
     Dates: start: 201210

REACTIONS (3)
  - Somnolence [Recovered/Resolved]
  - Drug interaction [Unknown]
  - Renal failure acute [Recovered/Resolved]
